FAERS Safety Report 11895959 (Version 1)
Quarter: 2016Q1

REPORT INFORMATION
  Report Type: Spontaneous
  Country: US (occurrence: US)
  Receive Date: 20160107
  Receipt Date: 20160107
  Transmission Date: 20160526
  Serious: Yes (Other)
  Sender: FDA-Public Use
  Company Number: PHHY2015US172411

PATIENT
  Age: 15 Year
  Sex: Female

DRUGS (2)
  1. ZIPRASIDONE. [Suspect]
     Active Substance: ZIPRASIDONE
     Dosage: 40 MG, (IN THE NIGHT)
     Route: 065
  2. ZIPRASIDONE. [Suspect]
     Active Substance: ZIPRASIDONE
     Indication: PSYCHOTIC DISORDER
     Dosage: 40 MG, (IN THE MORNING)
     Route: 065

REACTIONS (4)
  - Dysphagia [Unknown]
  - Pain [Unknown]
  - Throat tightness [Unknown]
  - Drug ineffective [Unknown]
